FAERS Safety Report 16471600 (Version 2)
Quarter: 2019Q3

REPORT INFORMATION
  Report Type: Report from Study
  Country: DE (occurrence: DE)
  Receive Date: 20190624
  Receipt Date: 20190715
  Transmission Date: 20191004
  Serious: Yes (Death, Life-Threatening, Hospitalization, Other)
  Sender: FDA-Public Use
  Company Number: DE-B.I. PHARMACEUTICALS,INC./RIDGEFIELD-2018-BI-053866

PATIENT
  Age: 55 Year
  Sex: Male
  Weight: 75 kg

DRUGS (3)
  1. DOCETAXEL. [Suspect]
     Active Substance: DOCETAXEL
     Indication: MALIGNANT NEOPLASM PROGRESSION
     Dosage: THE LAST DOSAGE OF DOCETAXEL BEFORE THE EVENT OCCURRED 65 MG.
     Route: 065
  2. BIBF 1120 [Suspect]
     Active Substance: NINTEDANIB
     Indication: NON-SMALL CELL LUNG CANCER
     Dosage: THE LAST DOSAGE OF STUDY MEDICATION BEFORE THE EVENT OCCURRED WAS 400 MILLIGRAM;
     Route: 065
  3. BIBF 1120 [Suspect]
     Active Substance: NINTEDANIB
     Dosage: THE LAST DOSAGE OF STUDY MEDICATION BEFORE THE EVENT OCCURRED WAS 400 MILLIGRAM;
     Route: 065
     Dates: start: 20180926, end: 20181011

REACTIONS (2)
  - Perforated ulcer [Fatal]
  - Malignant neoplasm progression [Fatal]

NARRATIVE: CASE EVENT DATE: 20180926
